FAERS Safety Report 5454336-6 (Version None)
Quarter: 2007Q3

REPORT INFORMATION
  Report Type: 
  Country: None (occurrence: None)
  Receive Date: 20070917
  Receipt Date: 20070905
  Transmission Date: 20080115
  Serious: Yes (Death)
  Sender: FDA-Public Use
  Company Number: AU-PFIZER INC-2007067298

PATIENT
  Sex: Female

DRUGS (1)
  1. SUTENT [Suspect]
     Indication: METASTATIC RENAL CELL CARCINOMA
     Route: 048

REACTIONS (3)
  - DISEASE PROGRESSION [None]
  - METASTASES TO CENTRAL NERVOUS SYSTEM [None]
  - METASTATIC RENAL CELL CARCINOMA [None]
